FAERS Safety Report 15779992 (Version 1)
Quarter: 2019Q1

REPORT INFORMATION
  Report Type: Other
  Country: IT (occurrence: IT)
  Receive Date: 20190102
  Receipt Date: 20190102
  Transmission Date: 20190417
  Serious: Yes (Hospitalization)
  Sender: FDA-Public Use
  Company Number: IT-ACCORD-099062

PATIENT
  Age: 81 Year
  Sex: Male

DRUGS (6)
  1. ATARAX [Concomitant]
     Active Substance: HYDROXYZINE HYDROCHLORIDE
  2. CLOPIDOGREL [Suspect]
     Active Substance: CLOPIDOGREL BISULFATE
     Indication: THROMBOSIS PROPHYLAXIS
     Route: 048
     Dates: start: 20170101, end: 20180110
  3. CARDICOR [Concomitant]
     Active Substance: BISOPROLOL
  4. ALLOPURINOL. [Suspect]
     Active Substance: ALLOPURINOL
     Indication: HYPERURICAEMIA
     Route: 048
  5. PANTOPRAZOLE [Concomitant]
     Active Substance: PANTOPRAZOLE
  6. METFORAL [Concomitant]
     Active Substance: METFORMIN HYDROCHLORIDE

REACTIONS (3)
  - Stevens-Johnson syndrome [Unknown]
  - Dysuria [Unknown]
  - Erythema [Unknown]

NARRATIVE: CASE EVENT DATE: 20180108
